FAERS Safety Report 10567057 (Version 6)
Quarter: 2015Q4

REPORT INFORMATION
  Report Type: Report from Study
  Country: CA (occurrence: CA)
  Receive Date: 20141105
  Receipt Date: 20151106
  Transmission Date: 20160304
  Serious: Yes (Death, Hospitalization, Other)
  Sender: FDA-Public Use
  Company Number: PHHY2014CA142453

PATIENT
  Age: 42 Year
  Sex: Female

DRUGS (2)
  1. SANDOSTATIN LAR DEPOT [Suspect]
     Active Substance: OCTREOTIDE ACETATE
     Indication: METASTATIC NEOPLASM
     Dosage: 30 MG, QMO
     Route: 030
     Dates: start: 20140930, end: 20141227
  2. SANDOSTATIN [Suspect]
     Active Substance: OCTREOTIDE ACETATE
     Indication: METASTATIC NEOPLASM
     Dosage: 300 UG, TID
     Route: 058
     Dates: start: 20140908

REACTIONS (11)
  - Ovarian cancer [Unknown]
  - Death [Fatal]
  - Dehydration [Unknown]
  - Malignant neoplasm progression [Unknown]
  - Hypophagia [Unknown]
  - Malaise [Unknown]
  - Off label use [Unknown]
  - Second primary malignancy [Unknown]
  - Body temperature decreased [Unknown]
  - Gastrointestinal disorder [Unknown]
  - Asthenia [Unknown]

NARRATIVE: CASE EVENT DATE: 2014
